FAERS Safety Report 7311267-4 (Version None)
Quarter: 2011Q1

REPORT INFORMATION
  Report Type: 
  Country: None (occurrence: None)
  Receive Date: 20110224
  Receipt Date: 20110210
  Transmission Date: 20110831
  Serious: Yes (Death)
  Sender: FDA-Public Use
  Company Number: US-JNJFOC-20091100738

PATIENT
  Sex: Male
  Weight: 79.38 kg

DRUGS (3)
  1. TOPAMAX [Suspect]
     Indication: HEADACHE
     Route: 065
  2. TOPAMAX [Suspect]
     Indication: MIGRAINE
     Route: 065
  3. TOPAMAX [Suspect]
     Indication: PAIN
     Route: 065

REACTIONS (2)
  - COMPLETED SUICIDE [None]
  - DRUG PRESCRIBING ERROR [None]
